FAERS Safety Report 21436177 (Version 1)
Quarter: 2022Q4

REPORT INFORMATION
  Report Type: Report from Study
  Country: CA (occurrence: CA)
  Receive Date: 20221010
  Receipt Date: 20221010
  Transmission Date: 20230113
  Serious: Yes (Life-Threatening, Hospitalization)
  Sender: FDA-Public Use
  Company Number: CA-BRISTOL-MYERS SQUIBB COMPANY-2022-115433

PATIENT
  Age: 79 Year
  Sex: Male
  Weight: 66.8 kg

DRUGS (1)
  1. OPDIVO [Suspect]
     Active Substance: NIVOLUMAB
     Indication: Bladder cancer
     Route: 042
     Dates: start: 20220525

REACTIONS (1)
  - Adverse event [Not Recovered/Not Resolved]
